FAERS Safety Report 13227698 (Version 1)
Quarter: 2017Q1

REPORT INFORMATION
  Report Type: Report from Study
  Country: BR (occurrence: BR)
  Receive Date: 20170213
  Receipt Date: 20170213
  Transmission Date: 20170428
  Serious: Yes (Other)
  Sender: FDA-Public Use
  Company Number: BR-BIOGEN-2017BI00356770

PATIENT
  Age: 59 Year
  Sex: Female

DRUGS (3)
  1. TECFIDERA [Suspect]
     Active Substance: DIMETHYL FUMARATE
     Indication: MULTIPLE SCLEROSIS
     Route: 048
     Dates: start: 20160404
  2. DORFLEX (DIPYRONE SODIUM MONOHYDRATE, ORPHENADRINE CITRATE, CAFFEINE) [Concomitant]
     Indication: PAIN
     Route: 065
  3. TRAMAL (TRAMADOL HYDROCHLORIDE) [Concomitant]
     Indication: PAIN
     Route: 065

REACTIONS (3)
  - Stress [Unknown]
  - Panic disorder [Recovered/Resolved]
  - Seizure [Recovered/Resolved]

NARRATIVE: CASE EVENT DATE: 20170201
